FAERS Safety Report 8960723 (Version 2)
Quarter: 2012Q4

REPORT INFORMATION
  Report Type: 
  Country: US (occurrence: US)
  Receive Date: 20121212
  Receipt Date: 20121218
  Transmission Date: 20130627
  Serious: Yes (Other)
  Sender: FDA-Public Use
  Company Number: CHPA2012US025166

PATIENT
  Age: 70 Year
  Sex: Female

DRUGS (1)
  1. PREVACID 24HR 15MG [Suspect]
     Indication: DUODENAL ULCER PERFORATION
     Dosage: 15 mg, BID
     Route: 048
     Dates: start: 2009

REACTIONS (4)
  - Nephrolithiasis [Recovered/Resolved]
  - Off label use [Unknown]
  - Overdose [Unknown]
  - Incorrect drug administration duration [Unknown]
